FAERS Safety Report 10926903 (Version 2)
Quarter: 2015Q2

REPORT INFORMATION
  Report Type: Spontaneous
  Country: US (occurrence: US)
  Receive Date: 20150318
  Receipt Date: 20150622
  Transmission Date: 20150821
  Serious: No
  Sender: FDA-Public Use
  Company Number: US-CELGENEUS-USA-2015023648

PATIENT
  Age: 18 Year
  Sex: Male

DRUGS (2)
  1. OTEZLA [Suspect]
     Active Substance: APREMILAST
     Indication: PSORIASIS
     Dosage: STARTER PARK
     Route: 048
     Dates: start: 20141230
  2. OTEZLA [Suspect]
     Active Substance: APREMILAST
     Dosage: STARTER PARK
     Route: 048
     Dates: end: 20150112

REACTIONS (2)
  - Chest discomfort [Recovered/Resolved]
  - Dyspnoea [Recovered/Resolved]

NARRATIVE: CASE EVENT DATE: 20141230
